FAERS Safety Report 7213055-6 (Version None)
Quarter: 2011Q1

REPORT INFORMATION
  Report Type: 
  Country: None (occurrence: None)
  Receive Date: 20110106
  Receipt Date: 20101227
  Transmission Date: 20110831
  Serious: Yes (Hospitalization, Other)
  Sender: FDA-Public Use
  Company Number: B0691489A

PATIENT
  Age: 48 Year
  Sex: Male

DRUGS (5)
  1. LITHIUM CARBONATE [Suspect]
     Dosage: 28800MG PER DAY
     Route: 065
  2. FLUNITRAZEPAM [Suspect]
     Dosage: 92MG PER DAY
     Route: 065
  3. PAROXETINE HYDROCHLORIDE [Suspect]
     Dosage: 2960MG PER DAY
     Route: 048
  4. ALPRAZOLAM [Suspect]
     Dosage: 30.4MG PER DAY
     Route: 065
  5. MAPROTILINE [Suspect]
     Dosage: 2990MG PER DAY
     Route: 065

REACTIONS (10)
  - SUICIDE ATTEMPT [None]
  - GAIT DISTURBANCE [None]
  - CONVULSION [None]
  - ELECTROCARDIOGRAM QRS COMPLEX PROLONGED [None]
  - TOXICITY TO VARIOUS AGENTS [None]
  - ELECTROCARDIOGRAM QT PROLONGED [None]
  - NYSTAGMUS [None]
  - INTENTION TREMOR [None]
  - MOBILITY DECREASED [None]
  - OVERDOSE [None]
